FAERS Safety Report 5840692-3 (Version None)
Quarter: 2008Q3

REPORT INFORMATION
  Report Type: 
  Country: None (occurrence: None)
  Receive Date: 20080811
  Receipt Date: 20080806
  Transmission Date: 20090109
  Serious: Yes (Death, Hospitalization, Other)
  Sender: FDA-Public Use
  Company Number: PHHY2008JP13576

PATIENT
  Sex: Female
  Weight: 40 kg

DRUGS (2)
  1. VOLTAREN [Suspect]
     Indication: ARTHRALGIA
     Dosage: 100 MG/ DAY
     Route: 054
     Dates: end: 20080522
  2. HERBESSER R [Concomitant]
     Indication: ANGINA PECTORIS
     Dosage: UNK
     Route: 048
     Dates: end: 20080522

REACTIONS (30)
  - ABDOMINAL DISCOMFORT [None]
  - ABDOMINAL PAIN [None]
  - ASCITES [None]
  - ATELECTASIS [None]
  - BLOOD GLUCOSE INCREASED [None]
  - BLOOD LACTATE DEHYDROGENASE INCREASED [None]
  - BLOOD UREA INCREASED [None]
  - DIARRHOEA [None]
  - DISSEMINATED INTRAVASCULAR COAGULATION [None]
  - ENTERITIS [None]
  - GASTROINTESTINAL DISORDER [None]
  - GASTROINTESTINAL EROSION [None]
  - GASTROINTESTINAL NECROSIS [None]
  - GASTROINTESTINAL TUBE INSERTION [None]
  - HAEMATOCRIT DECREASED [None]
  - HAEMOGLOBIN DECREASED [None]
  - LAPAROTOMY [None]
  - MECHANICAL VENTILATION [None]
  - PERITONITIS [None]
  - PLATELET COUNT DECREASED [None]
  - PNEUMONIA [None]
  - POST PROCEDURAL COMPLICATION [None]
  - SEPSIS [None]
  - SHOCK [None]
  - SMALL INTESTINAL HAEMORRHAGE [None]
  - SMALL INTESTINE OPERATION [None]
  - SMALL INTESTINE ULCER [None]
  - SURGERY [None]
  - TRACHEOSTOMY [None]
  - WHITE BLOOD CELL COUNT INCREASED [None]
